FAERS Safety Report 16587386 (Version 3)
Quarter: 2019Q3

REPORT INFORMATION
  Report Type: Spontaneous
  Country: US (occurrence: US)
  Receive Date: 20190717
  Receipt Date: 20190913
  Transmission Date: 20191004
  Serious: Yes (Life-Threatening, Hospitalization)
  Sender: FDA-Public Use
  Company Number: US-PFIZER INC-2019303038

PATIENT
  Age: 62 Year
  Sex: Male

DRUGS (1)
  1. MORPHINE SULFATE. [Suspect]
     Active Substance: MORPHINE SULFATE
     Indication: NAUSEA
     Dosage: UNK
     Route: 048

REACTIONS (3)
  - Allergic respiratory disease [Unknown]
  - Drug hypersensitivity [Unknown]
  - Nephrolithiasis [Unknown]
